FAERS Safety Report 9345302 (Version 3)
Quarter: 2014Q1

REPORT INFORMATION
  Report Type: Spontaneous
  Country: US (occurrence: US)
  Receive Date: 20130613
  Receipt Date: 20140306
  Transmission Date: 20141002
  Serious: Yes (Hospitalization)
  Sender: FDA-Public Use
  Company Number: US-B.I. PHARMACEUTICALS,INC./RIDGEFIELD-2013-BI-16280BP

PATIENT
  Age: 75 Year
  Sex: Female
  Weight: 108.86 kg

DRUGS (20)
  1. PRADAXA [Suspect]
     Indication: CEREBROVASCULAR ACCIDENT PROPHYLAXIS
     Dosage: 300 MG
     Route: 065
     Dates: start: 20101117, end: 20120105
  2. PRADAXA [Suspect]
     Indication: THROMBOSIS PROPHYLAXIS
  3. PRADAXA [Suspect]
     Indication: ATRIAL FIBRILLATION
  4. COREG [Concomitant]
     Dosage: 12.5 MG
     Route: 065
  5. LEXAPRO [Concomitant]
     Dosage: 10 MG
     Route: 065
  6. ENALAPRIL MALEATE [Concomitant]
     Route: 065
  7. POTASSIUM CHLORIDE [Concomitant]
     Dosage: 20 MEQ
     Route: 065
  8. NEXIUM [Concomitant]
     Route: 065
  9. PRAVASTATIN [Concomitant]
     Route: 065
  10. MAGNESIUM OXIDE [Concomitant]
     Dosage: 400 MG
     Route: 065
  11. LEVEMIR [Concomitant]
     Route: 058
  12. DIGOXIN [Concomitant]
     Route: 065
  13. GLIPIZIDE [Concomitant]
     Route: 065
  14. COMBIVENT [Concomitant]
     Route: 055
  15. VITAMINS [Concomitant]
     Route: 065
  16. ZAROXOLYN [Concomitant]
     Dosage: 5 MG
     Route: 065
  17. NORCO [Concomitant]
     Route: 065
  18. DEMODEX [Concomitant]
     Route: 048
  19. MIRAPEX [Concomitant]
     Route: 065
  20. ASPIRIN [Concomitant]
     Route: 065

REACTIONS (3)
  - Gastrointestinal haemorrhage [Unknown]
  - Cellulitis [Unknown]
  - Haemorrhagic anaemia [Unknown]
